FAERS Safety Report 8042069-1 (Version None)
Quarter: 2012Q1

REPORT INFORMATION
  Report Type: 
  Country: None (occurrence: None)
  Receive Date: 20120112
  Receipt Date: 20120104
  Transmission Date: 20120608
  Serious: Yes (Hospitalization)
  Sender: FDA-Public Use
  Company Number: US-BAYER-2011-033707

PATIENT
  Sex: Female

DRUGS (1)
  1. YAZ [Suspect]
     Indication: PREMENSTRUAL SYNDROME
     Dosage: UNK
     Dates: start: 20080301, end: 20090301

REACTIONS (5)
  - ABDOMINAL PAIN [None]
  - ABDOMINAL DISCOMFORT [None]
  - MUSCLE SPASMS [None]
  - DIARRHOEA [None]
  - CHOLECYSTECTOMY [None]
